FAERS Safety Report 23983875 (Version 1)
Quarter: 2024Q2

REPORT INFORMATION
  Report Type: Spontaneous
  Country: GB (occurrence: GB)
  Receive Date: 20240618
  Receipt Date: 20240618
  Transmission Date: 20240716
  Serious: Yes (Other)
  Sender: FDA-Public Use
  Company Number: GB-MHRA-MED-202406061212477710-JBSGQ

PATIENT
  Sex: Female
  Weight: 52 kg

DRUGS (1)
  1. MIRTAZAPINE [Suspect]
     Active Substance: MIRTAZAPINE
     Indication: Product used for unknown indication
     Dosage: UNK(30MG AND 15MG)
     Route: 065

REACTIONS (7)
  - Apathy [Not Recovered/Not Resolved]
  - Brain fog [Not Recovered/Not Resolved]
  - Decreased appetite [Not Recovered/Not Resolved]
  - Mania [Unknown]
  - Panic attack [Recovered/Resolved with Sequelae]
  - Suicidal ideation [Not Recovered/Not Resolved]
  - Tinnitus [Not Recovered/Not Resolved]
